FAERS Safety Report 17691572 (Version 6)
Quarter: 2021Q1

REPORT INFORMATION
  Report Type: Other
  Country: US (occurrence: US)
  Receive Date: 20200422
  Receipt Date: 20210329
  Transmission Date: 20210419
  Serious: Yes (Hospitalization, Other)
  Sender: FDA-Public Use
  Company Number: US-ROCHE-2586158

PATIENT
  Sex: Female
  Weight: 59.02 kg

DRUGS (17)
  1. OCREVUS [Suspect]
     Active Substance: OCRELIZUMAB
     Indication: RELAPSING-REMITTING MULTIPLE SCLEROSIS
     Dosage: 01/MAY/2018, 04/OCT/2018, 05/APR/2019, 04/OCT/2019, 09/APR/2020
     Route: 042
     Dates: start: 20180415
  2. PROVIGIL [Concomitant]
     Active Substance: MODAFINIL
     Indication: FATIGUE
     Route: 048
     Dates: start: 2009
  3. NEURONTIN [Concomitant]
     Active Substance: GABAPENTIN
     Indication: NEURALGIA
     Route: 048
     Dates: start: 2009
  4. VITAMIN B12 [Concomitant]
     Active Substance: CYANOCOBALAMIN
     Route: 048
  5. BIOTIN [Concomitant]
     Active Substance: BIOTIN
     Route: 048
  6. AMANTADINE. [Concomitant]
     Active Substance: AMANTADINE HYDROCHLORIDE
     Indication: FATIGUE
  7. OCREVUS [Suspect]
     Active Substance: OCRELIZUMAB
     Dosage: 30MG/ML INJECTION
     Route: 042
  8. EFFEXOR [Concomitant]
     Active Substance: VENLAFAXINE HYDROCHLORIDE
     Indication: DEPRESSION
     Dosage: NEXT DOSE RECEIVED ON /MAR/2020
     Route: 048
     Dates: start: 2019
  9. B COMPLEX WITH FOLIC ACID [Concomitant]
     Route: 048
  10. AMANTADINE. [Concomitant]
     Active Substance: AMANTADINE HYDROCHLORIDE
     Indication: DEPRESSION
  11. OCREVUS [Suspect]
     Active Substance: OCRELIZUMAB
     Route: 042
     Dates: start: 2017
  12. VITAMIN C [Concomitant]
     Active Substance: ASCORBIC ACID
     Route: 048
  13. LEXAPRO [Concomitant]
     Active Substance: ESCITALOPRAM OXALATE
     Indication: ANXIETY
  14. GABAPENTIN. [Concomitant]
     Active Substance: GABAPENTIN
     Indication: NEURALGIA
  15. LEXAPRO [Concomitant]
     Active Substance: ESCITALOPRAM OXALATE
     Indication: DEPRESSION
  16. REMERON [Concomitant]
     Active Substance: MIRTAZAPINE
     Indication: DEPRESSION
     Route: 048
     Dates: start: 2020
  17. ZINC. [Concomitant]
     Active Substance: ZINC
     Route: 048

REACTIONS (11)
  - Fatigue [Recovered/Resolved]
  - Multiple sclerosis relapse [Recovered/Resolved]
  - Pruritus [Not Recovered/Not Resolved]
  - Migraine [Recovered/Resolved]
  - Dysphagia [Not Recovered/Not Resolved]
  - Cellulitis [Recovered/Resolved]
  - Hypersensitivity [Not Recovered/Not Resolved]
  - Vitamin D decreased [Not Recovered/Not Resolved]
  - Oesophageal rupture [Unknown]
  - Headache [Not Recovered/Not Resolved]
  - Thrombosis [Not Recovered/Not Resolved]

NARRATIVE: CASE EVENT DATE: 2018
